FAERS Safety Report 7454081-1 (Version None)
Quarter: 2011Q2

REPORT INFORMATION
  Report Type: 
  Country: None (occurrence: None)
  Receive Date: 20110502
  Receipt Date: 20110428
  Transmission Date: 20111010
  Serious: Yes (Death, Life-Threatening, Hospitalization, Other)
  Sender: FDA-Public Use
  Company Number: US-B.I. PHARMACEUTICALS,INC./RIDGEFIELD-2011-BP-09498BP

PATIENT
  Age: 68 Year
  Sex: Female
  Weight: 88.64 kg

DRUGS (2)
  1. ASPIRIN [Concomitant]
     Dosage: 325 MG
  2. PRADAXA [Suspect]
     Dosage: 300 MG
     Dates: start: 20101101, end: 20110328

REACTIONS (8)
  - RESPIRATORY FAILURE [None]
  - TOXICITY TO VARIOUS AGENTS [None]
  - CARDIAC FAILURE CONGESTIVE [None]
  - HYPOXIA [None]
  - HAEMORRHAGE [None]
  - SEPSIS [None]
  - RENAL IMPAIRMENT [None]
  - CREATININE RENAL CLEARANCE DECREASED [None]
